FAERS Safety Report 11353061 (Version 1)
Quarter: 2015Q3

REPORT INFORMATION
  Report Type: Spontaneous
  Country: US (occurrence: US)
  Receive Date: 20150807
  Receipt Date: 20150807
  Transmission Date: 20151125
  Serious: No
  Sender: FDA-Public Use
  Company Number: US-JNJFOC-20150314685

PATIENT
  Sex: Female

DRUGS (2)
  1. ROGAINE UNSCENTED FOAM [Suspect]
     Active Substance: MINOXIDIL
     Indication: PRODUCT USED FOR UNKNOWN INDICATION
     Route: 065
  2. ROGAINE UNSCENTED FOAM [Suspect]
     Active Substance: MINOXIDIL
     Route: 065

REACTIONS (2)
  - Incorrect product storage [Unknown]
  - Poor quality drug administered [Unknown]
